FAERS Safety Report 7727103-8 (Version None)
Quarter: 2011Q3

REPORT INFORMATION
  Report Type: 
  Country: None (occurrence: None)
  Receive Date: 20110902
  Receipt Date: 20110824
  Transmission Date: 20111222
  Serious: Yes (Hospitalization)
  Sender: FDA-Public Use
  Company Number: FR-VERTEX PHARMACEUTICALS INC.-AE-2011-000299

PATIENT
  Sex: Male
  Weight: 67 kg

DRUGS (7)
  1. RIBAVIRIN [Concomitant]
  2. VX-950 [Suspect]
     Indication: HEPATITIS C
     Route: 048
     Dates: start: 20110221, end: 20110516
  3. NICARDIPINE HCL [Concomitant]
     Indication: HYPERTENSION
     Route: 048
     Dates: start: 20110101
  4. PEGINTERFERON ALFA-2A [Concomitant]
     Indication: HEPATITIS C
     Route: 058
     Dates: start: 20110221
  5. NEORECORMON [Concomitant]
     Indication: ANAEMIA
     Route: 048
     Dates: start: 20110419
  6. RIBAVIRIN [Concomitant]
     Indication: HEPATITIS C
     Route: 048
     Dates: start: 20110221
  7. PANTOPRAZOLE SODIUM [Concomitant]
     Indication: GASTROOESOPHAGEAL REFLUX DISEASE
     Route: 048
     Dates: start: 20010601

REACTIONS (3)
  - ANAEMIA [None]
  - RASH [None]
  - ASCITES [None]
